FAERS Safety Report 23190973 (Version 3)
Quarter: 2024Q1

REPORT INFORMATION
  Report Type: Spontaneous
  Country: US (occurrence: US)
  Receive Date: 20231116
  Receipt Date: 20240110
  Transmission Date: 20240410
  Serious: No
  Sender: FDA-Public Use
  Company Number: US-PFIZER INC-202300357138

PATIENT
  Age: 15 Year
  Sex: Male
  Weight: 39.91 kg

DRUGS (3)
  1. GENOTROPIN [Suspect]
     Active Substance: SOMATROPIN
     Indication: Growth disorder
     Dosage: 2.4 MG, DAILY
  2. DUPIXENT [Concomitant]
     Active Substance: DUPILUMAB
     Indication: Eczema
     Dosage: UNK
  3. SYNTHROID [Concomitant]
     Active Substance: LEVOTHYROXINE SODIUM
     Indication: Hypothyroidism
     Dosage: UNK

REACTIONS (2)
  - Drug dose omission by device [Unknown]
  - Device leakage [Unknown]
